FAERS Safety Report 23848857 (Version 3)
Quarter: 2024Q2

REPORT INFORMATION
  Report Type: Spontaneous
  Country: US (occurrence: US)
  Receive Date: 20240513
  Receipt Date: 20240603
  Transmission Date: 20240716
  Serious: No
  Sender: FDA-Public Use
  Company Number: US-HALEON-2174106

PATIENT
  Age: 61 Year
  Sex: Female

DRUGS (2)
  1. ABREVA [Suspect]
     Active Substance: DOCOSANOL
     Dosage: TIME INTERVAL: 0.33333333 DAYS: EXPDATE:202506EXPDATE:202506
     Dates: start: 202404, end: 20240512
  2. ABREVA [Suspect]
     Active Substance: DOCOSANOL
     Indication: Oral herpes

REACTIONS (3)
  - Drug ineffective [Unknown]
  - Inappropriate schedule of product administration [Unknown]
  - Product use issue [Unknown]

NARRATIVE: CASE EVENT DATE: 20240401
